FAERS Safety Report 6221213-2 (Version None)
Quarter: 2009Q2

REPORT INFORMATION
  Report Type: 
  Country: None (occurrence: None)
  Receive Date: 20090610
  Receipt Date: 20090604
  Transmission Date: 20091009
  Serious: Yes (Hospitalization, Other)
  Sender: FDA-Public Use
  Company Number: FR-NOVOPROD-286950

PATIENT
  Age: 38 Year
  Sex: Male
  Weight: 80 kg

DRUGS (1)
  1. NOVORAPID [Suspect]
     Indication: OFF LABEL USE
     Dosage: N/A
     Route: 042
     Dates: start: 20090323, end: 20090323

REACTIONS (2)
  - COMA [None]
  - SUICIDE ATTEMPT [None]
